FAERS Safety Report 11363531 (Version 1)
Quarter: 2015Q3

REPORT INFORMATION
  Report Type: Spontaneous
  Country: US (occurrence: None)
  Receive Date: 20150810
  Receipt Date: 20150810
  Transmission Date: 20151125
  Serious: Yes (Death, Life-Threatening, Hospitalization, Disabling)
  Sender: FDA-Public Use
  Company Number: None

PATIENT
  Age: 55 Year
  Sex: Female
  Weight: 58.97 kg

DRUGS (7)
  1. ISOSORBIDE DINITRATE. [Concomitant]
     Active Substance: ISOSORBIDE DINITRATE
  2. ALDACTONE [Concomitant]
     Active Substance: SPIRONOLACTONE
  3. TAMOXIFEN [Suspect]
     Active Substance: TAMOXIFEN
     Indication: NEOPLASM MALIGNANT
     Dosage: TAKEN BY MOUTH
     Route: 048
     Dates: start: 20140508, end: 20140728
  4. TAMOXIFEN [Concomitant]
     Active Substance: TAMOXIFEN
  5. ASPIRIN. [Concomitant]
     Active Substance: ASPIRIN
  6. COREG [Concomitant]
     Active Substance: CARVEDILOL
  7. HYDRALAZINE [Concomitant]
     Active Substance: HYDRALAZINE HYDROCHLORIDE

REACTIONS (4)
  - Metastases to spine [None]
  - Metastases to central nervous system [None]
  - Cardiomyopathy [None]
  - Malignant neoplasm progression [None]

NARRATIVE: CASE EVENT DATE: 20140809
